FAERS Safety Report 8966855 (Version 3)
Quarter: 2013Q4

REPORT INFORMATION
  Report Type: Spontaneous
  Country: BR (occurrence: BR)
  Receive Date: 20121217
  Receipt Date: 20131114
  Transmission Date: 20140711
  Serious: Yes (Hospitalization, Other)
  Sender: FDA-Public Use
  Company Number: BR-PFIZER INC-2012315109

PATIENT
  Age: 72 Year
  Sex: Female
  Weight: 74 kg

DRUGS (7)
  1. SUTENT [Suspect]
     Indication: RENAL CELL CARCINOMA
     Dosage: 37.5MG, ONCE DAILY (CYCLIC 4 TO 2)
     Route: 048
     Dates: start: 20121120, end: 201309
  2. PRES PLUS [Concomitant]
     Dosage: 5/10MG, 1 TABLET A DAY
  3. HYGROTON [Concomitant]
     Dosage: 25 MG, 1X/DAY
  4. PURAN T4 [Concomitant]
     Dosage: 125 MG, 1X/DAY
  5. SIMVASTATIN [Concomitant]
     Dosage: UNK, 1X/DAY
  6. GLIFAGE [Concomitant]
     Dosage: 500 MG, 1X/DAY
  7. MAREVAN [Concomitant]
     Indication: THROMBOSIS
     Dosage: 5 MG, 1X/DAY
     Dates: start: 201208

REACTIONS (9)
  - Blood sodium decreased [Recovered/Resolved]
  - Road traffic accident [Unknown]
  - Fracture [Recovering/Resolving]
  - Erythema [Not Recovered/Not Resolved]
  - Pruritus [Not Recovered/Not Resolved]
  - Oral pain [Not Recovered/Not Resolved]
  - Blood cholesterol increased [Not Recovered/Not Resolved]
  - Dysphagia [Not Recovered/Not Resolved]
  - Memory impairment [Unknown]
